FAERS Safety Report 24997124 (Version 1)
Quarter: 2025Q1

REPORT INFORMATION
  Report Type: Other
  Country: ES (occurrence: ES)
  Receive Date: 20250221
  Receipt Date: 20250221
  Transmission Date: 20250408
  Serious: Yes (Hospitalization, Other)
  Sender: APTAPHARMA INC.
  Company Number: ES-AptaPharma Inc.-2171555

PATIENT
  Age: 12 Year
  Sex: Female

DRUGS (1)
  1. IBUPROFEN [Suspect]
     Active Substance: IBUPROFEN
     Indication: Respiratory tract infection

REACTIONS (2)
  - Tubulointerstitial nephritis and uveitis syndrome [Unknown]
  - Product use in unapproved indication [Unknown]
